FAERS Safety Report 15450068 (Version 1)
Quarter: 2018Q4

REPORT INFORMATION
  Report Type: Spontaneous
  Country: US (occurrence: US)
  Receive Date: 20181001
  Receipt Date: 20181001
  Transmission Date: 20190204
  Serious: No
  Sender: FDA-Public Use
  Company Number: US-PFIZER INC-2018388816

PATIENT
  Age: 60 Year
  Sex: Male

DRUGS (1)
  1. LYRICA [Suspect]
     Active Substance: PREGABALIN
     Dosage: 200 MG, UNK (QUANTITY 90 /DAY SUPPLY 90)

REACTIONS (3)
  - Off label use [Unknown]
  - Insomnia [Unknown]
  - Hallucination [Unknown]
